FAERS Safety Report 16246052 (Version 4)
Quarter: 2019Q2

REPORT INFORMATION
  Report Type: Report from Study
  Country: MY (occurrence: MY)
  Receive Date: 20190426
  Receipt Date: 20190603
  Transmission Date: 20190711
  Serious: Yes (Hospitalization)
  Sender: FDA-Public Use
  Company Number: MY-GILEAD-2019-0404448

PATIENT
  Age: 24 Year
  Sex: Male
  Weight: 68.9 kg

DRUGS (8)
  1. BICTEGRAVIR W/EMTRICITABINE/TENOFOVIR ALAFENAMIDE [Suspect]
     Active Substance: BICTEGRAVIR\EMTRICITABINE\TENOFOVIR ALAFENAMIDE
     Indication: HIV INFECTION
     Dosage: 1 DOSAGE FORM, QD
     Route: 048
     Dates: start: 20190319
  2. AQUEOUS [EMULSIFYING WAX;PARAFFIN, LIQUID;WHITE SOFT PARAFFIN] [Concomitant]
     Indication: DRY SKIN
     Route: 061
     Dates: start: 20190215
  3. BETAMETHASONE VALERATE. [Concomitant]
     Active Substance: BETAMETHASONE VALERATE
     Indication: PRURITUS
     Route: 061
     Dates: start: 20190215
  4. PARACETAMOL [Concomitant]
     Active Substance: ACETAMINOPHEN
     Indication: DIZZINESS
     Route: 048
     Dates: start: 20190327
  5. PLACEBO [Suspect]
     Active Substance: UNSPECIFIED INGREDIENT
     Dosage: 1 DOSAGE FORM QD, PTM F/TDF
     Route: 048
     Dates: start: 20190319
  6. COTRIMOXAZOLE [Concomitant]
     Active Substance: SULFAMETHOXAZOLE\TRIMETHOPRIM
     Indication: ANTIFUNGAL PROPHYLAXIS
     Dosage: UNK
     Route: 048
     Dates: start: 20190226, end: 20190522
  7. PLACEBO [Suspect]
     Active Substance: UNSPECIFIED INGREDIENT
     Indication: HIV INFECTION
     Dosage: 1 DOSAGE FORM QD, PTM DTG
     Route: 048
     Dates: start: 20190319
  8. ASCORBIC ACID. [Concomitant]
     Active Substance: ASCORBIC ACID
     Route: 048
     Dates: start: 20190319

REACTIONS (1)
  - Meningitis cryptococcal [Recovering/Resolving]

NARRATIVE: CASE EVENT DATE: 20190419
